FAERS Safety Report 8573711 (Version 6)
Quarter: 2014Q4

REPORT INFORMATION
  Report Type: Spontaneous
  Country: US (occurrence: US)
  Receive Date: 20120522
  Receipt Date: 20141127
  Transmission Date: 20150529
  Serious: Yes (Other)
  Sender: FDA-Public Use
  Company Number: US-ASTRAZENECA-2012SE30154

PATIENT
  Age: 59 Year
  Sex: Female
  Weight: 58.1 kg

DRUGS (14)
  1. NEXIUM [Suspect]
     Active Substance: ESOMEPRAZOLE MAGNESIUM
     Indication: GASTROOESOPHAGEAL REFLUX DISEASE
     Route: 048
  2. NEXIUM [Suspect]
     Active Substance: ESOMEPRAZOLE MAGNESIUM
     Indication: GASTROOESOPHAGEAL REFLUX DISEASE
     Route: 048
  3. VENLAFEXINE [Concomitant]
     Indication: DEPRESSION
  4. WARFARIN [Concomitant]
     Active Substance: WARFARIN
     Indication: ANTICOAGULANT THERAPY
  5. NEXIUM [Suspect]
     Active Substance: ESOMEPRAZOLE MAGNESIUM
     Indication: GASTROOESOPHAGEAL REFLUX DISEASE
     Route: 048
  6. COREG [Concomitant]
     Active Substance: CARVEDILOL
     Indication: HEART RATE ABNORMAL
  7. LISINOPRIL. [Suspect]
     Active Substance: LISINOPRIL
     Indication: BLOOD PRESSURE ABNORMAL
     Route: 048
  8. ALPRAZOLAM. [Concomitant]
     Active Substance: ALPRAZOLAM
     Dosage: 0.5 TO 1MG PRN QD
  9. NEXIUM [Suspect]
     Active Substance: ESOMEPRAZOLE MAGNESIUM
     Indication: GASTROOESOPHAGEAL REFLUX DISEASE
     Route: 048
  10. PRILOSEC OTC [Suspect]
     Active Substance: OMEPRAZOLE MAGNESIUM
     Route: 048
  11. LORAZEPAM. [Concomitant]
     Active Substance: LORAZEPAM
  12. ALPRAZOLAM. [Concomitant]
     Active Substance: ALPRAZOLAM
     Dosage: PRN
  13. PREDNISONE. [Concomitant]
     Active Substance: PREDNISONE
     Indication: SCIATIC NERVE INJURY
  14. PRAVASTATIN [Concomitant]
     Active Substance: PRAVASTATIN\PRAVASTATIN SODIUM
     Indication: BLOOD CHOLESTEROL ABNORMAL

REACTIONS (19)
  - Abdominal distension [Unknown]
  - Drug effect incomplete [Unknown]
  - Large intestine polyp [Unknown]
  - Dyspepsia [Not Recovered/Not Resolved]
  - Drug ineffective [Unknown]
  - Gastrooesophageal reflux disease [Not Recovered/Not Resolved]
  - Intentional product misuse [Not Recovered/Not Resolved]
  - Irritable bowel syndrome [Unknown]
  - Abdominal discomfort [Unknown]
  - Off label use [Recovered/Resolved]
  - Oral mucosal blistering [Recovered/Resolved]
  - Feeding disorder [Unknown]
  - Weight decreased [Recovered/Resolved]
  - Oesophageal disorder [Unknown]
  - Throat irritation [Not Recovered/Not Resolved]
  - Eructation [Unknown]
  - Oesophageal stenosis [Unknown]
  - Oesophageal food impaction [Unknown]
  - Dysphagia [Unknown]

NARRATIVE: CASE EVENT DATE: 2012
